FAERS Safety Report 7589490-3 (Version None)
Quarter: 2011Q3

REPORT INFORMATION
  Report Type: 
  Country: None (occurrence: None)
  Receive Date: 20110705
  Receipt Date: 20110621
  Transmission Date: 20111222
  Serious: Yes (Hospitalization)
  Sender: FDA-Public Use
  Company Number: IT-ROCHE-784768

PATIENT

DRUGS (2)
  1. FEMARA [Concomitant]
     Route: 048
     Dates: start: 20080317, end: 20081124
  2. TRASTUZUMAB [Suspect]
     Route: 042
     Dates: start: 20080317, end: 20081124

REACTIONS (1)
  - ACUTE MYOCARDIAL INFARCTION [None]
